FAERS Safety Report 18521469 (Version 1)
Quarter: 2020Q4

REPORT INFORMATION
  Report Type: Spontaneous
  Country: US (occurrence: US)
  Receive Date: 20201119
  Receipt Date: 20201119
  Transmission Date: 20210114
  Serious: No
  Sender: FDA-Public Use
  Company Number: US-CELGENEUS-USA-20201103594

PATIENT
  Sex: Female
  Weight: 68.1 kg

DRUGS (50)
  1. ALBUTEROL. [Concomitant]
     Active Substance: ALBUTEROL
     Indication: ASTHMA
     Route: 065
  2. CALCIUM 600+D [Concomitant]
     Active Substance: CALCIUM\VITAMIN D
     Indication: SUPPLEMENTATION THERAPY
  3. LACTULOSE. [Concomitant]
     Active Substance: LACTULOSE
     Indication: ABDOMINAL DISCOMFORT
     Route: 065
  4. ALBUTEROL. [Concomitant]
     Active Substance: ALBUTEROL
     Indication: GOUT
  5. ALBUTEROL. [Concomitant]
     Active Substance: ALBUTEROL
     Indication: SUPPLEMENTATION THERAPY
  6. ALLOPURINOL. [Concomitant]
     Active Substance: ALLOPURINOL
     Indication: ASTHMA
     Route: 065
  7. TRAMADOL. [Concomitant]
     Active Substance: TRAMADOL
     Indication: PNEUMONIA
  8. OXYCODONE [Concomitant]
     Active Substance: OXYCODONE
     Indication: PAIN
     Route: 065
  9. ACYCLOVIR. [Concomitant]
     Active Substance: ACYCLOVIR
     Indication: ANTIVIRAL TREATMENT
     Route: 065
  10. ACYCLOVIR. [Concomitant]
     Active Substance: ACYCLOVIR
     Indication: GASTROOESOPHAGEAL REFLUX DISEASE
  11. TORSEMIDE. [Concomitant]
     Active Substance: TORSEMIDE
     Indication: ANTIVIRAL TREATMENT
     Route: 065
  12. LEVOTHYROXINE. [Concomitant]
     Active Substance: LEVOTHYROXINE
     Indication: NAUSEA
  13. PANTETHINE [Concomitant]
     Active Substance: PANTETHINE
     Indication: SUPPLEMENTATION THERAPY
     Route: 065
  14. MELATONIN [Concomitant]
     Active Substance: MELATONIN
     Indication: ASTHMA
     Route: 065
  15. MAGNESIUM [Concomitant]
     Active Substance: MAGNESIUM
     Indication: GOUT
  16. TRAMADOL. [Concomitant]
     Active Substance: TRAMADOL
     Indication: PAIN
     Route: 065
  17. CALCIUM 600+D [Concomitant]
     Active Substance: CALCIUM\VITAMIN D
     Indication: NAUSEA
  18. BENTYL [Concomitant]
     Active Substance: DICYCLOMINE HYDROCHLORIDE
     Indication: ABDOMINAL DISCOMFORT
     Route: 065
  19. SENNA [Concomitant]
     Active Substance: SENNA LEAF\SENNOSIDES\SENNOSIDES A AND B
     Indication: CONSTIPATION PROPHYLAXIS
  20. MIRALAX [Concomitant]
     Active Substance: POLYETHYLENE GLYCOL 3350
     Indication: CONSTIPATION PROPHYLAXIS
  21. ALLOPURINOL. [Concomitant]
     Active Substance: ALLOPURINOL
     Indication: SUPPLEMENTATION THERAPY
  22. MAGNESIUM [Concomitant]
     Active Substance: MAGNESIUM
     Indication: ASTHMA
     Route: 065
  23. TORSEMIDE. [Concomitant]
     Active Substance: TORSEMIDE
     Indication: DIURETIC THERAPY
  24. LEVOTHYROXINE. [Concomitant]
     Active Substance: LEVOTHYROXINE
     Indication: THYROID DISORDER
     Route: 065
  25. ONDANSETRON [Concomitant]
     Active Substance: ONDANSETRON
     Indication: THYROID DISORDER
     Route: 065
  26. ONDANSETRON [Concomitant]
     Active Substance: ONDANSETRON
     Indication: NAUSEA
  27. ONDANSETRON [Concomitant]
     Active Substance: ONDANSETRON
     Indication: SUPPLEMENTATION THERAPY
  28. LACTULOSE. [Concomitant]
     Active Substance: LACTULOSE
     Indication: CONSTIPATION PROPHYLAXIS
  29. SENNA [Concomitant]
     Active Substance: SENNA LEAF\SENNOSIDES\SENNOSIDES A AND B
     Indication: ABDOMINAL DISCOMFORT
     Route: 065
  30. VITAMIN D3 [Concomitant]
     Active Substance: CHOLECALCIFEROL
     Indication: SUPPLEMENTATION THERAPY
     Route: 065
  31. REVLIMID [Suspect]
     Active Substance: LENALIDOMIDE
     Indication: PLASMA CELL MYELOMA
     Dosage: 5 MILLIGRAM
     Route: 048
     Dates: start: 20200826
  32. MELATONIN [Concomitant]
     Active Substance: MELATONIN
     Indication: SUPPLEMENTATION THERAPY
  33. ATOVAQUONE. [Concomitant]
     Active Substance: ATOVAQUONE
     Indication: PNEUMONIA
  34. PANTOPRAZOLE [Concomitant]
     Active Substance: PANTOPRAZOLE
     Indication: ANTIVIRAL TREATMENT
     Route: 065
  35. PANTOPRAZOLE [Concomitant]
     Active Substance: PANTOPRAZOLE
     Indication: DIURETIC THERAPY
  36. BENTYL [Concomitant]
     Active Substance: DICYCLOMINE HYDROCHLORIDE
     Indication: CONSTIPATION PROPHYLAXIS
  37. ALLOPURINOL. [Concomitant]
     Active Substance: ALLOPURINOL
     Indication: GOUT
  38. MELATONIN [Concomitant]
     Active Substance: MELATONIN
     Indication: GOUT
  39. ACYCLOVIR. [Concomitant]
     Active Substance: ACYCLOVIR
     Indication: DIURETIC THERAPY
  40. TORSEMIDE. [Concomitant]
     Active Substance: TORSEMIDE
     Indication: GASTROOESOPHAGEAL REFLUX DISEASE
  41. PANTOPRAZOLE [Concomitant]
     Active Substance: PANTOPRAZOLE
     Indication: GASTROOESOPHAGEAL REFLUX DISEASE
  42. CALCIUM 600+D [Concomitant]
     Active Substance: CALCIUM\VITAMIN D
     Indication: THYROID DISORDER
     Route: 065
  43. MIRALAX [Concomitant]
     Active Substance: POLYETHYLENE GLYCOL 3350
     Indication: ABDOMINAL DISCOMFORT
     Route: 065
  44. FOLIC ACID. [Concomitant]
     Active Substance: FOLIC ACID
     Indication: SUPPLEMENTATION THERAPY
     Route: 065
  45. REVLIMID [Suspect]
     Active Substance: LENALIDOMIDE
     Dosage: 7.5 MILLIGRAM
     Route: 048
     Dates: start: 20201028
  46. MAGNESIUM [Concomitant]
     Active Substance: MAGNESIUM
     Indication: SUPPLEMENTATION THERAPY
  47. OXYCODONE [Concomitant]
     Active Substance: OXYCODONE
     Indication: PNEUMONIA
  48. ATOVAQUONE. [Concomitant]
     Active Substance: ATOVAQUONE
     Indication: PAIN
     Route: 065
  49. LEVOTHYROXINE. [Concomitant]
     Active Substance: LEVOTHYROXINE
     Indication: SUPPLEMENTATION THERAPY
  50. FISH OIL [Concomitant]
     Active Substance: FISH OIL
     Indication: SUPPLEMENTATION THERAPY
     Route: 065

REACTIONS (1)
  - Large intestine infection [Not Recovered/Not Resolved]

NARRATIVE: CASE EVENT DATE: 2020
